FAERS Safety Report 11099325 (Version 1)
Quarter: 2015Q2

REPORT INFORMATION
  Report Type: Spontaneous
  Country: TR (occurrence: None)
  Receive Date: 20150506
  Receipt Date: 20150506
  Transmission Date: 20150821
  Serious: Yes (Other)
  Sender: FDA-Public Use
  Company Number: 2015SGN00635

PATIENT

DRUGS (5)
  1. ADCETRIS [Suspect]
     Active Substance: BRENTUXIMAB VEDOTIN
     Indication: HODGKIN^S DISEASE
  2. FLUDARABINE [Concomitant]
     Active Substance: FLUDARABINE PHOSPHATE
  3. CIKLOSPORIN ALKALOID (CICLOSPORIN) [Concomitant]
  4. METHOTREXATE [Concomitant]
     Active Substance: METHOTREXATE
  5. MELPHALAN [Concomitant]
     Active Substance: MELPHALAN

REACTIONS (2)
  - Chronic graft versus host disease [None]
  - Acute graft versus host disease [None]
